FAERS Safety Report 8776844 (Version 5)
Quarter: 2012Q4

REPORT INFORMATION
  Report Type: 
  Country: CN (occurrence: CN)
  Receive Date: 20120911
  Receipt Date: 20121005
  Transmission Date: 20130627
  Serious: Yes (Other)
  Sender: FDA-Public Use
  Company Number: CN-JNJFOC-20120901468

PATIENT
  Age: 6 Month
  Sex: Male
  Weight: 7.5 kg

DRUGS (1)
  1. INFANTS^ TYLENOL [Suspect]
     Indication: PYREXIA
     Dosage: 5ml at 10:00pm on 02-SEP-2012 and 5ml at 1:00pm on 03-SEP-2012
     Route: 048
     Dates: start: 20120902, end: 20120903

REACTIONS (8)
  - Hepatic function abnormal [Recovered/Resolved]
  - Incorrect dose administered [Recovered/Resolved]
  - Hyperhidrosis [Recovered/Resolved]
  - Crying [Recovered/Resolved]
  - Vomiting [Recovered/Resolved]
  - Nausea [Recovered/Resolved]
  - Rash [Recovered/Resolved]
  - Drug prescribing error [Recovered/Resolved]
